FAERS Safety Report 5062509-X (Version None)
Quarter: 2006Q3

REPORT INFORMATION
  Report Type: 
  Country: None (occurrence: None)
  Receive Date: 20060721
  Receipt Date: 20060703
  Transmission Date: 20061208
  Serious: Yes (Hospitalization)
  Sender: FDA-Public Use
  Company Number: 227462

PATIENT
  Age: 61 Year
  Sex: Male

DRUGS (15)
  1. AVASTIN [Suspect]
     Indication: COLORECTAL CANCER
     Dosage: 820 MG, INTRAVENOUS
     Route: 042
     Dates: start: 20060501
  2. CAPECITABINE (CAPECITABINE) [Suspect]
     Indication: COLORECTAL CANCER
     Dosage: 4600 MG, ORAL
     Route: 048
     Dates: start: 20060502
  3. OXALIPLATIN (OXALIPLATIN) [Suspect]
     Indication: COLORECTAL CANCER
     Dosage: 310 MG, INTRAVENOUS
     Route: 042
     Dates: start: 20060501
  4. ERBITUX [Suspect]
     Indication: COLORECTAL CANCER
     Dosage: 950 MG, INTRAVENOUS
     Route: 042
     Dates: start: 20060501
  5. CLEMASTINE [Concomitant]
  6. GRANISETRON (GRANISETRON HYDROCHLORIDE) [Concomitant]
  7. MAGNESIUM SO4 (MAGNESIUM SULFATE) [Concomitant]
  8. CALCIUM NOS [Concomitant]
  9. ACETAMINOPHEN [Concomitant]
  10. FLECAINIDE (FLECAINIDE ACETATE) [Concomitant]
  11. ENALAPRIL MALEATE [Concomitant]
  12. HYDROCHLOROTHIAZIDE [Concomitant]
  13. ATORVASTATIN (ATORVASTATIN CALCIUM) [Concomitant]
  14. CARBASALATE CALCIUM (CARBASPIRIN CALCIUM) [Concomitant]
  15. PANTOPRAZOLE SODIUM [Concomitant]

REACTIONS (4)
  - HAEMOGLOBIN DECREASED [None]
  - HEADACHE [None]
  - MALAISE [None]
  - PYREXIA [None]
